FAERS Safety Report 5172273-1 (Version None)
Quarter: 2006Q4

REPORT INFORMATION
  Report Type: 
  Country: None (occurrence: None)
  Receive Date: 20061205
  Receipt Date: 20061116
  Transmission Date: 20070319
  Serious: Yes (Hospitalization, Other)
  Sender: FDA-Public Use
  Company Number: US-2006-025863

PATIENT
  Age: 56 Year
  Sex: Female
  Weight: 99.8 kg

DRUGS (9)
  1. BETASERON [Suspect]
     Indication: RELAPSING-REMITTING MULTIPLE SCLEROSIS
     Dosage: 8 MIU, EVERY 2D, SUBCUTANEOUS
     Route: 058
     Dates: start: 20050318
  2. BENICAR [Concomitant]
  3. TOPROL-XL [Concomitant]
  4. LISINOPRIL [Concomitant]
  5. LASIX [Concomitant]
  6. ALLOPURINOL [Concomitant]
  7. PREVACID [Concomitant]
  8. TYLENOL [Concomitant]
  9. ALGICON (POTASSIUM CARBONATE, MAGNESIUM CARBONATE, ALUMINIUM HYDROXIDE [Concomitant]

REACTIONS (6)
  - BACK PAIN [None]
  - CHOLECYSTITIS [None]
  - CHOLELITHIASIS [None]
  - DIARRHOEA [None]
  - HEPATIC CIRRHOSIS [None]
  - PROCEDURAL HYPERTENSION [None]
